FAERS Safety Report 6962860-X (Version None)
Quarter: 2010Q3

REPORT INFORMATION
  Report Type: 
  Country: None (occurrence: None)
  Receive Date: 20100823
  Receipt Date: 20100604
  Transmission Date: 20110219
  Serious: No
  Sender: FDA-Public Use
  Company Number: 013669

PATIENT
  Age: 32 Year
  Sex: Female

DRUGS (4)
  1. CERTOLIZUMAB PEGOL [Suspect]
     Indication: CROHN'S DISEASE
     Dates: start: 20090101
  2. VALTREX [Concomitant]
  3. ERYTHROMYCIN [Concomitant]
  4. CLARITHROMYCIN [Concomitant]

REACTIONS (1)
  - URTICARIA [None]
